FAERS Safety Report 24390353 (Version 1)
Quarter: 2024Q4

REPORT INFORMATION
  Report Type: Spontaneous
  Country: US (occurrence: US)
  Receive Date: 20241003
  Receipt Date: 20241003
  Transmission Date: 20250115
  Serious: Yes (Other)
  Sender: STRIDES
  Company Number: US-STRIDES ARCOLAB LIMITED-2024SP007621

PATIENT
  Age: 37 Year
  Sex: Female

DRUGS (1)
  1. URSODIOL [Suspect]
     Active Substance: URSODIOL
     Indication: Cholestasis of pregnancy
     Dosage: UNK
     Route: 065

REACTIONS (2)
  - Drug ineffective for unapproved indication [Unknown]
  - Maternal exposure during pregnancy [Unknown]
